FAERS Safety Report 9135030 (Version 1)
Quarter: 2013Q1

REPORT INFORMATION
  Report Type: Spontaneous
  Country: FR (occurrence: FR)
  Receive Date: 20130304
  Receipt Date: 20130304
  Transmission Date: 20140127
  Serious: Yes (Hospitalization)
  Sender: FDA-Public Use
  Company Number: FR-SANOFI-AVENTIS-2013SA016911

PATIENT
  Age: 84 Year
  Sex: Female

DRUGS (4)
  1. LOVENOX [Suspect]
     Indication: ATRIAL FIBRILLATION
     Route: 058
     Dates: start: 201301, end: 201301
  2. KARDEGIC [Suspect]
     Indication: ATRIAL FIBRILLATION
     Route: 048
     Dates: start: 201301, end: 201301
  3. PLAVIX [Suspect]
     Indication: ATRIAL FIBRILLATION
     Route: 048
     Dates: end: 201301
  4. XARELTO [Suspect]
     Indication: ATRIAL FIBRILLATION
     Route: 048
     Dates: start: 201301, end: 201301

REACTIONS (5)
  - Renal failure acute [Recovered/Resolved]
  - Vomiting [Recovered/Resolved]
  - Hypotension [Recovered/Resolved]
  - Abdominal wall haematoma [Recovering/Resolving]
  - Anaemia [Recovering/Resolving]
